FAERS Safety Report 6358605-7 (Version None)
Quarter: 2009Q3

REPORT INFORMATION
  Report Type: 
  Country: None (occurrence: None)
  Receive Date: 20090914
  Receipt Date: 20090904
  Transmission Date: 20100115
  Serious: Yes (Hospitalization)
  Sender: FDA-Public Use
  Company Number: 2009US003383

PATIENT
  Age: 64 Year
  Sex: Male

DRUGS (5)
  1. ALEFACEPT (ALEFACEPT) INJECTION [Suspect]
     Indication: RENAL TRANSPLANT
     Dosage: SEE IMAGE
     Route: 042
     Dates: start: 20090808, end: 20090808
  2. ALEFACEPT (ALEFACEPT) INJECTION [Suspect]
     Indication: RENAL TRANSPLANT
     Dosage: SEE IMAGE
     Route: 042
     Dates: start: 20090811, end: 20090811
  3. ALEFACEPT (ALEFACEPT) INJECTION [Suspect]
     Indication: RENAL TRANSPLANT
     Dosage: SEE IMAGE
     Route: 042
     Dates: start: 20090814, end: 20090814
  4. ALEFACEPT (ALEFACEPT) INJECTION [Suspect]
     Indication: RENAL TRANSPLANT
     Dosage: SEE IMAGE
     Route: 042
     Dates: start: 20090831, end: 20090831
  5. PROGRAF [Suspect]
     Indication: RENAL TRANSPLANT
     Dosage: /D, ORAL
     Route: 048
     Dates: start: 20090804

REACTIONS (1)
  - SICK SINUS SYNDROME [None]
